FAERS Safety Report 4366125-4 (Version None)
Quarter: 2004Q2

REPORT INFORMATION
  Report Type: 
  Country: None (occurrence: None)
  Receive Date: 20040524
  Receipt Date: 20040511
  Transmission Date: 20050107
  Serious: Yes (Hospitalization)
  Sender: FDA-Public Use
  Company Number: JACFRA2000000285

PATIENT
  Age: 40 Year
  Sex: Male
  Weight: 79 kg

DRUGS (8)
  1. TOPIRAMATE [Suspect]
     Indication: EPILEPSY
     Dosage: 700 MG, IN 1 DAY, ORAL
     Route: 048
  2. DEPAKENE [Suspect]
     Indication: EPILEPSY
     Dosage: SEE IMAGE
     Dates: start: 20000510
  3. DEPAKENE [Suspect]
     Indication: EPILEPSY
     Dosage: SEE IMAGE
     Dates: start: 20000511
  4. DEPAKENE [Suspect]
     Indication: EPILEPSY
     Dosage: SEE IMAGE
     Dates: start: 20000516
  5. TEGRETOL [Suspect]
     Indication: EPILEPSY
     Dosage: 200 MG, IN 1 DAY, ORAL
     Route: 048
     Dates: start: 19980101, end: 20000501
  6. TEGRETOL [Suspect]
     Indication: EPILEPSY
     Dosage: 200 MG, IN 1 DAY, ORAL
     Route: 048
     Dates: start: 20000501, end: 20000517
  7. URBANYL (CLOBAZAM) [Concomitant]
  8. LAMICTAL [Concomitant]

REACTIONS (9)
  - ASTERIXIS [None]
  - CONDITION AGGRAVATED [None]
  - CONFUSIONAL STATE [None]
  - CONVULSION [None]
  - DRUG INTERACTION [None]
  - ELECTROENCEPHALOGRAM ABNORMAL [None]
  - HYPERAMMONAEMIA [None]
  - PSYCHOMOTOR RETARDATION [None]
  - TOXIC INDUCED ENCEPHALOPATHY [None]
